FAERS Safety Report 5854237-5 (Version None)
Quarter: 2008Q3

REPORT INFORMATION
  Report Type: 
  Country: None (occurrence: None)
  Receive Date: 20080822
  Receipt Date: 20080818
  Transmission Date: 20090109
  Serious: Yes (Other)
  Sender: FDA-Public Use
  Company Number: PHEH2008US07242

PATIENT
  Sex: Female

DRUGS (7)
  1. ZOMETA [Suspect]
     Indication: METASTASES TO BONE
     Dosage: 4 MG, MONTHLY
     Route: 042
     Dates: start: 20060830, end: 20080811
  2. ALOXI [Concomitant]
     Dosage: 25 MG, UNK
  3. DECADRON                                /CAN/ [Concomitant]
     Dosage: 20 MG, UNK
  4. VITAMIN B-12 [Concomitant]
     Dosage: 1000 UG, UNK
  5. TAXOTERE [Concomitant]
     Dosage: 51 MG, UNK
  6. FASLODEX [Concomitant]
     Dosage: 250 MG, UNK
  7. AVASTIN [Concomitant]
     Dosage: 730 MG, UNK

REACTIONS (1)
  - OSTEONECROSIS [None]
